FAERS Safety Report 6480001-2 (Version None)
Quarter: 2009Q4

REPORT INFORMATION
  Report Type: 
  Country: None (occurrence: None)
  Receive Date: 20091208
  Receipt Date: 20091118
  Transmission Date: 20100525
  Serious: Yes (Other)
  Sender: FDA-Public Use
  Company Number: JP-SANOFI-AVENTIS-A01200816689

PATIENT
  Age: 56 Year
  Sex: Male

DRUGS (8)
  1. OXALIPLATIN [Suspect]
     Indication: LARGE INTESTINE CARCINOMA
     Route: 041
     Dates: start: 20081030, end: 20081030
  2. OXALIPLATIN [Suspect]
     Route: 041
     Dates: start: 20081206, end: 20081206
  3. FLUOROURACIL [Suspect]
     Indication: LARGE INTESTINE CARCINOMA
     Dosage: DOSE TEXT: 700 MG/BODY IN BOLUS THEN 4500 MG/BODY/2 DAYS
     Route: 040
     Dates: start: 20081030, end: 20081030
  4. FLUOROURACIL [Suspect]
     Route: 041
     Dates: start: 20081030
  5. FLUOROURACIL [Suspect]
     Route: 040
     Dates: start: 20081206, end: 20081206
  6. FLUOROURACIL [Suspect]
     Route: 041
     Dates: start: 20081206
  7. CALCIUM LEVOFOLINATE [Concomitant]
     Indication: LARGE INTESTINE CARCINOMA
     Route: 041
     Dates: start: 20081030, end: 20081030
  8. CALCIUM LEVOFOLINATE [Concomitant]
     Route: 041
     Dates: start: 20081206, end: 20081206

REACTIONS (1)
  - LEUKOENCEPHALOPATHY [None]
